FAERS Safety Report 17474688 (Version 1)
Quarter: 2020Q1

REPORT INFORMATION
  Report Type: Report from Study
  Country: CA (occurrence: CA)
  Receive Date: 20200228
  Receipt Date: 20200228
  Transmission Date: 20200409
  Serious: Yes (Other)
  Sender: FDA-Public Use
  Company Number: CA-JNJFOC-20190732387

PATIENT
  Sex: Female
  Weight: 88.6 kg

DRUGS (1)
  1. STELARA [Suspect]
     Active Substance: USTEKINUMAB
     Indication: CROHN^S DISEASE
     Dosage: STRENGTH = 130 MG; 520 MY FOLLOWED BY UNSPECIFIED DOSE ONCE EVERY EIGHT WEEKS.
     Route: 042
     Dates: start: 20190528

REACTIONS (1)
  - Cholelithiasis [Unknown]
